FAERS Safety Report 6706323-5 (Version None)
Quarter: 2010Q2

REPORT INFORMATION
  Report Type: 
  Country: None (occurrence: None)
  Receive Date: 20100503
  Receipt Date: 20100419
  Transmission Date: 20101027
  Serious: Yes (Hospitalization, Other)
  Sender: FDA-Public Use
  Company Number: PHEH2009US13483

PATIENT
  Sex: Female
  Weight: 79.819 kg

DRUGS (7)
  1. EXJADE [Suspect]
     Indication: MYELODYSPLASTIC SYNDROME
     Dosage: 500 MG, TID
     Route: 048
     Dates: start: 20071114
  2. EXJADE [Suspect]
     Indication: IRON OVERLOAD
     Dosage: 500 MG, TID
     Dates: start: 20090217, end: 20090818
  3. EXJADE [Suspect]
     Dosage: 500 MG, TID
     Route: 048
     Dates: end: 20100126
  4. POTASSIUM [Concomitant]
     Dosage: 10 MEQ, BID
     Route: 048
  5. TENORETIC 100 [Concomitant]
     Dosage: 50/25 QD
     Route: 048
  6. ASPIRIN [Concomitant]
     Dosage: 81 MG, QD
     Route: 048
  7. MECLIZINE [Concomitant]
     Dosage: 25MG, HALF TABLET
     Route: 048

REACTIONS (18)
  - ASTHENIA [None]
  - BLINDNESS [None]
  - CATARACT [None]
  - CONVULSION [None]
  - CORNEAL OEDEMA [None]
  - DIARRHOEA [None]
  - FURUNCLE [None]
  - INFLAMMATION [None]
  - MALAISE [None]
  - NAUSEA [None]
  - RENAL FAILURE CHRONIC [None]
  - STAPHYLOCOCCAL INFECTION [None]
  - THROMBOCYTOPENIA [None]
  - UPPER RESPIRATORY TRACT INFECTION [None]
  - URINE OUTPUT DECREASED [None]
  - VISION BLURRED [None]
  - VISUAL IMPAIRMENT [None]
  - WHITE BLOOD CELL COUNT INCREASED [None]
